FAERS Safety Report 7709356-5 (Version None)
Quarter: 2011Q3

REPORT INFORMATION
  Report Type: 
  Country: None (occurrence: None)
  Receive Date: 20110819
  Receipt Date: 20110812
  Transmission Date: 20111222
  Serious: Yes (Other)
  Sender: FDA-Public Use
  Company Number: 2011SP038341

PATIENT
  Age: 63 Year
  Sex: Female

DRUGS (9)
  1. SIMVASTATIN [Concomitant]
  2. TEMODAL [Suspect]
     Indication: PRODUCT USED FOR UNKNOWN INDICATION
     Dates: start: 20110714, end: 20110809
  3. LEVOTHYROXINE SODIUM [Concomitant]
  4. FLUOXETINE [Concomitant]
  5. INSULIN [Concomitant]
  6. OMEPRAZOLE [Concomitant]
  7. CONTRIMOXAZOLE [Concomitant]
  8. DOMPERIDONE [Concomitant]
  9. METFORMIN [Concomitant]

REACTIONS (1)
  - LIVER INJURY [None]
